FAERS Safety Report 8593560 (Version 2)
Quarter: 2013Q3

REPORT INFORMATION
  Report Type: Spontaneous
  Country: US (occurrence: US)
  Receive Date: 20120604
  Receipt Date: 20130726
  Transmission Date: 20140515
  Serious: No
  Sender: FDA-Public Use
  Company Number: US-ASTRAZENECA-2012SE34969

PATIENT
  Sex: Female
  Weight: 80.7 kg

DRUGS (31)
  1. NEXIUM [Suspect]
     Indication: GASTROOESOPHAGEAL REFLUX DISEASE
     Dosage: 40MG, 2 TIMES A DAY, 2 IN THE MORNING AND 2 AT NIGHT
     Route: 048
     Dates: start: 2001, end: 2011
  2. NEXIUM [Suspect]
     Indication: GASTROOESOPHAGEAL REFLUX DISEASE
     Route: 048
     Dates: start: 20070307
  3. PROTONIX [Concomitant]
     Dates: start: 20041001
  4. ISOSORBIDE [Concomitant]
     Dates: start: 20070317
  5. LIPITOR [Concomitant]
     Dates: start: 20070223
  6. ALPRAZOLAM [Concomitant]
     Dates: start: 20040825
  7. AZITHROMYCIN [Concomitant]
  8. ZYRTEC [Concomitant]
  9. VALTREX [Concomitant]
  10. MUPIROCIN [Concomitant]
     Dates: start: 20080303
  11. ZOLOFT [Concomitant]
     Dates: start: 20050126
  12. CLONAZEPAM [Concomitant]
     Dates: start: 20040811
  13. HYDROCODONE/APAP [Concomitant]
     Dosage: 7.5-750
     Dates: start: 20040811
  14. HYDROCODONE/IBUPROFEN [Concomitant]
     Dates: start: 20050110
  15. TIZANIDINE [Concomitant]
     Dates: start: 20050214
  16. BUPROPION SR [Concomitant]
     Dates: start: 20050214
  17. CYCLOBENZAPRINE [Concomitant]
     Dates: start: 20050511
  18. METRONIDAZOLE [Concomitant]
     Dates: start: 20051011
  19. FLUCONAZOLE [Concomitant]
     Dates: start: 20051011
  20. AMOXICILLIN [Concomitant]
     Dates: start: 20060125
  21. OMNICEF [Concomitant]
     Dates: start: 20060503
  22. TRAMADOL [Concomitant]
     Dates: start: 20060728
  23. AMITRIPTYLINE HCL [Concomitant]
     Dates: start: 20060728
  24. CEFALEXIN MONOHYDRATE [Concomitant]
     Dates: start: 20060802
  25. LEXAPRO [Concomitant]
     Dates: start: 20060909
  26. ASACOL [Concomitant]
     Dates: start: 20070307
  27. SUCRALFATE [Concomitant]
     Dates: start: 20070307
  28. METHYLPREDNISOLONE [Concomitant]
     Dates: start: 20070319
  29. HYOSCYAMINE SULFATE [Concomitant]
     Dates: start: 20070727
  30. PULMICORT [Concomitant]
     Route: 055
     Dates: start: 20101104
  31. CRESTOR [Concomitant]
     Route: 048
     Dates: start: 20101202

REACTIONS (8)
  - Osteoporosis [Unknown]
  - Arthritis [Unknown]
  - Bone disorder [Unknown]
  - Multiple fractures [Unknown]
  - Liver disorder [Unknown]
  - Rheumatoid arthritis [Unknown]
  - Scoliosis [Unknown]
  - Vitamin D deficiency [Unknown]
